FAERS Safety Report 24986154 (Version 2)
Quarter: 2025Q1

REPORT INFORMATION
  Report Type: Spontaneous
  Country: PL (occurrence: PL)
  Receive Date: 20250219
  Receipt Date: 20250223
  Transmission Date: 20250409
  Serious: Yes (Other)
  Sender: REGENERON
  Company Number: PL-BAYER-2025A001893

PATIENT
  Age: 68 Year
  Sex: Female

DRUGS (2)
  1. EYLEA HD [Suspect]
     Active Substance: AFLIBERCEPT
     Indication: Neovascular age-related macular degeneration
     Dates: start: 20241212, end: 20241212
  2. EYLEA HD [Suspect]
     Active Substance: AFLIBERCEPT
     Dates: start: 20250109

REACTIONS (5)
  - Blindness unilateral [Recovering/Resolving]
  - Vitritis [Recovered/Resolved]
  - Vitreous opacities [Unknown]
  - Multiple use of single-use product [Unknown]
  - Product storage error [Unknown]

NARRATIVE: CASE EVENT DATE: 20241217
